FAERS Safety Report 4811747-7 (Version None)
Quarter: 2005Q4

REPORT INFORMATION
  Report Type: 
  Country: None (occurrence: None)
  Receive Date: 20051026
  Receipt Date: 20051011
  Transmission Date: 20060501
  Serious: Yes (Life-Threatening)
  Sender: FDA-Public Use
  Company Number: 218342

PATIENT
  Age: 41 Year
  Sex: Female
  Weight: 70 kg

DRUGS (4)
  1. XOLAIR [Suspect]
     Indication: ASTHMA
     Dosage: 150 MG, 1/MONTH, SUBCUTANEOUS
     Route: 058
     Dates: start: 20050505
  2. SALBUTAMOL (ALBUTEROL SULFATE, ALBUTEROL) [Concomitant]
  3. SALMETEROL XINAFOATE INHALER (SALMETEROL XINAFOATE) [Concomitant]
  4. FLUTICASONE (FLUTICASONE PROPIONATE) [Concomitant]

REACTIONS (2)
  - ASTHMA [None]
  - DISEASE RECURRENCE [None]
